FAERS Safety Report 8891451 (Version 2)
Quarter: 2012Q4

REPORT INFORMATION
  Report Type: Spontaneous
  Country: US (occurrence: None)
  Receive Date: 20121031
  Receipt Date: 20121123
  Transmission Date: 20130627
  Serious: Yes (Death, Hospitalization)
  Sender: FDA-Public Use
  Company Number: 2011SGN00377

PATIENT
  Age: 40 Year
  Sex: Female

DRUGS (4)
  1. ADCETRIS (BRENTUXIMAB VEDOTIN) INJECTION [Suspect]
     Indication: GVHD
     Dosage: every 21 days
     Dates: start: 20111027, end: 20111027
  2. ADCETRIS (BRENTUXIMAB VEDOTIN) INJECTION [Suspect]
     Indication: GVHD
     Dosage: for 21 days
     Dates: start: 20111115, end: 20111115
  3. PREDNISONE (PREDNISONE ACETATE) [Concomitant]
  4. TACROLIMUS (TACROLIMUS) [Concomitant]

REACTIONS (3)
  - Graft versus host disease [None]
  - Off label use [None]
  - Condition aggravated [None]
